FAERS Safety Report 10687754 (Version 4)
Quarter: 2015Q2

REPORT INFORMATION
  Report Type: Spontaneous
  Country: JP (occurrence: JP)
  Receive Date: 20150102
  Receipt Date: 20150409
  Transmission Date: 20150821
  Serious: Yes (Death, Hospitalization, Other)
  Sender: FDA-Public Use
  Company Number: JP-JNJFOC-20141215735

PATIENT
  Age: 84 Year
  Sex: Male

DRUGS (3)
  1. DECADRON [Concomitant]
     Active Substance: DEXAMETHASONE
     Indication: PROSTATE CANCER
     Route: 048
     Dates: start: 201408, end: 20141106
  2. ZYTIGA [Suspect]
     Active Substance: ABIRATERONE ACETATE
     Indication: PROSTATE CANCER
     Route: 048
     Dates: start: 20140919, end: 20141213
  3. PREDONINE [Concomitant]
     Active Substance: PREDNISOLONE\PREDNISOLONE ACETATE\PREDNISOLONE SODIUM SUCCINATE
     Indication: PROSTATE CANCER
     Route: 048
     Dates: start: 20141107, end: 20141214

REACTIONS (6)
  - Hypokalaemia [Fatal]
  - Restlessness [Unknown]
  - Prostate cancer [Fatal]
  - Moaning [Unknown]
  - Fluid retention [Unknown]
  - Ventricular tachycardia [Fatal]

NARRATIVE: CASE EVENT DATE: 20141205
